FAERS Safety Report 15837722 (Version 1)
Quarter: 2019Q1

REPORT INFORMATION
  Report Type: Spontaneous
  Country: US (occurrence: US)
  Receive Date: 20190117
  Receipt Date: 20190117
  Transmission Date: 20190417
  Serious: No
  Sender: FDA-Public Use
  Company Number: US-SA-2019SA012156

PATIENT
  Age: 14 Year
  Sex: Female
  Weight: 57.1 kg

DRUGS (11)
  1. ROBITUSSIN COUGH + COLD [Concomitant]
     Dosage: 20 ML, BID
     Route: 048
     Dates: start: 20181203
  2. NORMAL SALINE [Concomitant]
     Active Substance: SODIUM CHLORIDE
     Dosage: 0.9 %
     Route: 042
     Dates: start: 20180928
  3. CETRIZINE [Concomitant]
     Active Substance: CETIRIZINE HYDROCHLORIDE
     Dosage: 10 MG
     Route: 048
     Dates: start: 20181010
  4. LIDOCAINE HYDROCHLORIDE. [Concomitant]
     Active Substance: LIDOCAINE HYDROCHLORIDE
     Dosage: 1 %
     Route: 058
     Dates: start: 20181010
  5. EPINEPHRINE. [Concomitant]
     Active Substance: EPINEPHRINE
     Dosage: 0.3 MG, PRN
     Route: 030
     Dates: start: 20180928
  6. FABRAZYME [Suspect]
     Active Substance: AGALSIDASE BETA
     Indication: FABRY^S DISEASE
     Dosage: 0.686 MG/KG, QOW
     Route: 041
     Dates: start: 20150815
  7. HEPARIN [Concomitant]
     Active Substance: HEPARIN SODIUM
     Dosage: 100 UNITS/ML
     Route: 042
     Dates: start: 20180928
  8. ZOFRAN [Concomitant]
     Active Substance: ONDANSETRON HYDROCHLORIDE
     Dosage: 4 MG, QD (1 DOSE DAILY)
     Route: 048
     Dates: start: 20180928
  9. STERILE WATER [Concomitant]
     Active Substance: WATER
     Dosage: 11 ML
     Route: 042
     Dates: start: 20180928
  10. AMITRIPTYLINEHYDROCHLORIDE [Concomitant]
     Dosage: 1 DF, QD
     Route: 048
     Dates: start: 20180928
  11. MOTRIN IB [Concomitant]
     Active Substance: IBUPROFEN
     Dosage: 200 MG, QD (1 DOSE DAILY)
     Route: 048
     Dates: start: 20180928

REACTIONS (1)
  - Bronchitis [Unknown]
